FAERS Safety Report 7703574-8 (Version None)
Quarter: 2011Q3

REPORT INFORMATION
  Report Type: 
  Country: None (occurrence: None)
  Receive Date: 20110823
  Receipt Date: 20110811
  Transmission Date: 20111222
  Serious: Yes (Hospitalization, Other)
  Sender: FDA-Public Use
  Company Number: PHHY2011FR67892

PATIENT
  Sex: Male
  Weight: 75 kg

DRUGS (17)
  1. CLOZAPINE [Suspect]
     Dosage: 400 MG, DAILY
     Dates: end: 20090101
  2. CLOZAPINE [Suspect]
     Dosage: 200 MG, DAILY
     Dates: start: 20110204
  3. HYDROXYZINE [Concomitant]
     Dosage: 50 MG, DAILY
     Route: 048
     Dates: start: 20080620
  4. HYDROXYZINE [Concomitant]
     Dosage: 500 MG, DAILY
     Route: 048
  5. CLOZAPINE [Suspect]
     Dosage: 100 MG, DAILY FOR ONE WEEK
     Route: 048
     Dates: start: 20080301
  6. CLOZAPINE [Suspect]
     Dosage: 50 MG, DAILY
     Route: 048
     Dates: start: 20100301, end: 20101201
  7. DEPAKENE [Concomitant]
     Indication: EPILEPSY
     Dosage: 500 MG, DAILY
     Route: 048
     Dates: start: 20100104
  8. DEPAKENE [Concomitant]
     Dosage: 1500 MG, DAILY
     Dates: start: 20110114
  9. CLOZAPINE [Suspect]
     Dosage: 450 MG, DAILY
     Dates: start: 20091201, end: 20100301
  10. SECTRAL [Concomitant]
     Dosage: 200 TO 400 MG DAILY
     Route: 048
     Dates: start: 20100224
  11. CLOZAPINE [Suspect]
     Dosage: 25 MG, DAILY
     Dates: start: 20080711
  12. DEPAKENE [Concomitant]
     Dosage: 2000 MG, DAILY
     Dates: start: 20110119
  13. DEPAKENE [Concomitant]
     Dosage: 3000 MG, DAILY
     Dates: start: 20110209
  14. ESOMEPRAZOLE MAGNESIUM [Concomitant]
     Dosage: 40 MG, DAILY
     Route: 048
     Dates: start: 20101104
  15. CLOZAPINE [Suspect]
     Dosage: 425 MG, DAILY
     Route: 048
     Dates: start: 20110114
  16. CLOZAPINE [Suspect]
     Dosage: 350 MG, DAILY
     Dates: start: 20110119
  17. PAROXETINE HCL [Concomitant]
     Dosage: 40 MG, DAILY
     Route: 048

REACTIONS (8)
  - RENAL IMPAIRMENT [None]
  - CLONUS [None]
  - ANTIPSYCHOTIC DRUG LEVEL INCREASED [None]
  - CLONIC CONVULSION [None]
  - BLOOD UREA INCREASED [None]
  - EPILEPSY [None]
  - BRAIN INJURY [None]
  - BLOOD CREATININE INCREASED [None]
